FAERS Safety Report 5245458-3 (Version None)
Quarter: 2007Q1

REPORT INFORMATION
  Report Type: 
  Country: None (occurrence: None)
  Receive Date: 20070223
  Receipt Date: 20070214
  Transmission Date: 20070707
  Serious: Yes (Disabling, Other)
  Sender: FDA-Public Use
  Company Number: US-ELI_LILLY_AND_COMPANY-US200702002795

PATIENT
  Age: 71 Year
  Sex: Male

DRUGS (4)
  1. HUMALOG MIX 50/50 [Suspect]
     Indication: DIABETES MELLITUS
     Dosage: 60 U, EACH MORNING
     Dates: start: 20060101
  2. HUMALOG MIX 50/50 [Suspect]
     Dosage: 60 U, EACH EVENING
     Dates: start: 20060101
  3. NOVOLOG [Concomitant]
     Indication: BLOOD GLUCOSE INCREASED
     Dosage: UNK, UNK
     Dates: start: 20060501
  4. NOVOLOG MIX 70/30 [Concomitant]
     Indication: BLOOD GLUCOSE INCREASED

REACTIONS (8)
  - BLOOD GLUCOSE INCREASED [None]
  - DRUG INEFFECTIVE [None]
  - DYSPNOEA [None]
  - INJECTION SITE IRRITATION [None]
  - INJECTION SITE PAIN [None]
  - MONOPLEGIA [None]
  - POLIOMYELITIS [None]
  - THERAPEUTIC RESPONSE DECREASED [None]
